FAERS Safety Report 9315299 (Version 2)
Quarter: 2013Q2

REPORT INFORMATION
  Report Type: Spontaneous
  Country: GB (occurrence: GB)
  Receive Date: 20130529
  Receipt Date: 20130603
  Transmission Date: 20140414
  Serious: Yes (Other)
  Sender: FDA-Public Use
  Company Number: GB-TEVA-407965ISR

PATIENT
  Age: 27 Year
  Sex: Male
  Weight: 82 kg

DRUGS (2)
  1. TRIMETHOPRIM [Suspect]
     Indication: URINARY TRACT INFECTION
     Dosage: 400 MILLIGRAM DAILY; 200 MG, 2X/DAY
  2. CHAMPIX [Suspect]
     Dosage: 2 MILLIGRAM DAILY; 1 MG, 2X/DAY
     Route: 048
     Dates: start: 20130226, end: 20130419

REACTIONS (2)
  - Panic attack [Unknown]
  - Suicidal ideation [Unknown]
